FAERS Safety Report 6122992-5 (Version None)
Quarter: 2009Q1

REPORT INFORMATION
  Report Type: 
  Country: None (occurrence: None)
  Receive Date: 20090318
  Receipt Date: 20090217
  Transmission Date: 20090719
  Serious: Yes (Other)
  Sender: FDA-Public Use
  Company Number: JP-ABBOTT-09P-087-0562659-00

PATIENT
  Age: 10 Year
  Sex: Female

DRUGS (2)
  1. CLARITH TAB [Suspect]
     Indication: INFECTION PROPHYLAXIS
     Route: 048
     Dates: start: 20090128, end: 20090130
  2. RELENZA [Suspect]
     Indication: INFLUENZA
     Route: 055
     Dates: start: 20090128, end: 20090130

REACTIONS (1)
  - RHABDOMYOLYSIS [None]
